FAERS Safety Report 5804735-5 (Version None)
Quarter: 2008Q3

REPORT INFORMATION
  Report Type: 
  Country: None (occurrence: None)
  Receive Date: 20080709
  Receipt Date: 20080703
  Transmission Date: 20090109
  Serious: Yes (Other)
  Sender: FDA-Public Use
  Company Number: US-AMGEN-KDL290503

PATIENT
  Sex: Female

DRUGS (13)
  1. ENBREL [Suspect]
     Indication: PSORIATIC ARTHROPATHY
     Route: 058
     Dates: start: 20080513, end: 20080601
  2. ENBREL [Suspect]
     Indication: POLYARTHRITIS
  3. ALBUTEROL [Concomitant]
  4. LISINOPRIL [Concomitant]
  5. ESTRADIOL [Concomitant]
  6. LEVOTHYROXINE SODIUM [Concomitant]
  7. ACIPHEX [Concomitant]
  8. OXYCODONE HCL [Concomitant]
  9. KADIAN [Concomitant]
  10. CYMBALTA [Concomitant]
  11. ALPRAZOLAM [Concomitant]
  12. FUROSEMIDE [Concomitant]
  13. FLEXERIL [Concomitant]

REACTIONS (7)
  - CHEST PAIN [None]
  - CONSTIPATION [None]
  - DIZZINESS [None]
  - HYPERSENSITIVITY [None]
  - OEDEMA PERIPHERAL [None]
  - THROAT TIGHTNESS [None]
  - URINARY TRACT INFECTION [None]
